FAERS Safety Report 23878216 (Version 1)
Quarter: 2024Q2

REPORT INFORMATION
  Report Type: Spontaneous
  Country: US (occurrence: US)
  Receive Date: 20240521
  Receipt Date: 20240521
  Transmission Date: 20240717
  Serious: No
  Sender: FDA-Public Use
  Company Number: US-CIPLA LTD.-2024US02754

PATIENT

DRUGS (2)
  1. ALBUTEROL [Suspect]
     Active Substance: ALBUTEROL
     Indication: Cough
     Dosage: 180 MCG (2 PUFFS), PRN (EVERY 4 HOURS AS NEEDED)
     Dates: start: 2024
  2. ALBUTEROL SULFATE [Concomitant]
     Active Substance: ALBUTEROL SULFATE
     Indication: Product used for unknown indication
     Dosage: UNK
     Route: 065

REACTIONS (4)
  - Cough [Not Recovered/Not Resolved]
  - Off label use [Unknown]
  - Device delivery system issue [Unknown]
  - Device malfunction [Unknown]

NARRATIVE: CASE EVENT DATE: 20240101
